FAERS Safety Report 18614206 (Version 1)
Quarter: 2020Q4

REPORT INFORMATION
  Report Type: Spontaneous
  Country: US (occurrence: US)
  Receive Date: 20201214
  Receipt Date: 20201214
  Transmission Date: 20210114
  Serious: No
  Sender: FDA-Public Use
  Company Number: US-ABBVIE-20K-163-3316905-00

PATIENT
  Age: 67 Year
  Sex: Male
  Weight: 81.72 kg

DRUGS (2)
  1. IMBRUVICA [Suspect]
     Active Substance: IBRUTINIB
     Indication: MANTLE CELL LYMPHOMA
     Route: 048
     Dates: start: 2015
  2. LOSARTAN. [Concomitant]
     Active Substance: LOSARTAN
     Indication: HYPERTENSION

REACTIONS (8)
  - Muscle spasms [Unknown]
  - Haemorrhagic diathesis [Unknown]
  - Rash [Not Recovered/Not Resolved]
  - Increased tendency to bruise [Unknown]
  - Dry mouth [Unknown]
  - Stomatitis [Not Recovered/Not Resolved]
  - Hypertension [Unknown]
  - Pollakiuria [Unknown]

NARRATIVE: CASE EVENT DATE: 201906
